FAERS Safety Report 10175706 (Version 4)
Quarter: 2014Q2

REPORT INFORMATION
  Report Type: Spontaneous
  Country: JP (occurrence: JP)
  Receive Date: 20140516
  Receipt Date: 20140611
  Transmission Date: 20141212
  Serious: Yes (Hospitalization)
  Sender: FDA-Public Use
  Company Number: JP-JNJFOC-20140507889

PATIENT
  Age: 65 Year
  Sex: Female
  Weight: 38 kg

DRUGS (3)
  1. REMICADE [Suspect]
     Indication: COLITIS ULCERATIVE
     Route: 042
  2. PREDNISOLONE [Suspect]
     Indication: COLITIS ULCERATIVE
     Route: 065
  3. PREDNISOLONE [Suspect]
     Indication: COLITIS ULCERATIVE
     Route: 065
     Dates: start: 201206, end: 201211

REACTIONS (9)
  - Appendix cancer [Unknown]
  - Bronchiectasis [Recovered/Resolved]
  - Gastroduodenitis [Recovered/Resolved]
  - Colitis ulcerative [Unknown]
  - Pulmonary mass [Recovered/Resolved]
  - Organising pneumonia [Unknown]
  - Pouchitis [Not Recovered/Not Resolved]
  - Adenocarcinoma [Unknown]
  - Fungal infection [Recovered/Resolved]
